FAERS Safety Report 15537829 (Version 1)
Quarter: 2018Q4

REPORT INFORMATION
  Report Type: Spontaneous
  Country: US (occurrence: US)
  Receive Date: 20181016
  Receipt Date: 20181016
  Transmission Date: 20190205
  Serious: No
  Sender: FDA-Public Use
  Company Number: None

PATIENT
  Age: 65 Year
  Sex: Female

DRUGS (1)
  1. ENOXAPARIN SYR 80MG/0.8ML [Suspect]
     Active Substance: ENOXAPARIN SODIUM
     Indication: PULMONARY EMBOLISM
     Dates: start: 201807, end: 201810

REACTIONS (3)
  - Erythema [None]
  - Swelling [None]
  - Injection site reaction [None]

NARRATIVE: CASE EVENT DATE: 20180719
